FAERS Safety Report 6212582-8 (Version None)
Quarter: 2009Q2

REPORT INFORMATION
  Report Type: 
  Country: None (occurrence: None)
  Receive Date: 20090603
  Receipt Date: 20090527
  Transmission Date: 20091009
  Serious: Yes (Hospitalization, Other)
  Sender: FDA-Public Use
  Company Number: US-BAYER-200921911NA

PATIENT
  Age: 40 Year
  Sex: Female
  Weight: 38 kg

DRUGS (2)
  1. MIRENA [Suspect]
     Indication: CONTRACEPTION
     Route: 015
     Dates: start: 20090301
  2. NOT NAMED [Concomitant]
     Indication: VON WILLEBRAND'S DISEASE

REACTIONS (8)
  - ABDOMINAL PAIN LOWER [None]
  - ACTIVITIES OF DAILY LIVING IMPAIRED [None]
  - BEDRIDDEN [None]
  - DEPRESSION SUICIDAL [None]
  - IRRITABILITY [None]
  - LOSS OF LIBIDO [None]
  - MOOD SWINGS [None]
  - VAGINAL HAEMORRHAGE [None]
